FAERS Safety Report 16477009 (Version 1)
Quarter: 2019Q2

REPORT INFORMATION
  Report Type: Report from Study
  Country: US (occurrence: US)
  Receive Date: 20190626
  Receipt Date: 20190626
  Transmission Date: 20190711
  Serious: Yes (Disabling, Other)
  Sender: FDA-Public Use
  Company Number: US-JAZZ-2019-US-008659

PATIENT
  Sex: Male

DRUGS (30)
  1. XYREM [Suspect]
     Active Substance: SODIUM OXYBATE
     Dosage: 3.5 G, BID
     Route: 048
     Dates: start: 200406, end: 200410
  2. XYREM [Suspect]
     Active Substance: SODIUM OXYBATE
     Dosage: 4.5 G, BID
     Route: 048
     Dates: start: 200804, end: 200805
  3. CHLORELLA VULGARIS [Concomitant]
     Active Substance: CHLORELLA VULGARIS
     Indication: PRODUCT USED FOR UNKNOWN INDICATION
     Dosage: UNK
     Dates: end: 201802
  4. HYDROCHLORIC ACID [Concomitant]
     Active Substance: HYDROCHLORIC ACID
     Indication: PRODUCT USED FOR UNKNOWN INDICATION
  5. NALTREXONE HCL [Concomitant]
     Active Substance: NALTREXONE HYDROCHLORIDE
     Indication: PRODUCT USED FOR UNKNOWN INDICATION
     Dosage: UNK
     Dates: end: 201802
  6. FISH OIL [Concomitant]
     Active Substance: FISH OIL
     Indication: PRODUCT USED FOR UNKNOWN INDICATION
  7. QUERCETIN DIHYDRATE [Concomitant]
     Indication: PRODUCT USED FOR UNKNOWN INDICATION
  8. XYREM [Suspect]
     Active Substance: SODIUM OXYBATE
     Dosage: 4.5 G, BID
     Route: 048
     Dates: start: 200410, end: 200501
  9. XYREM [Suspect]
     Active Substance: SODIUM OXYBATE
     Dosage: DOSE ADJUSTMENT
     Route: 048
     Dates: start: 201209, end: 201210
  10. XYREM [Suspect]
     Active Substance: SODIUM OXYBATE
     Dosage: 4.5 G, BID
     Route: 048
     Dates: start: 201210, end: 201210
  11. XYREM [Suspect]
     Active Substance: SODIUM OXYBATE
     Dosage: 4.5 G, SECOND DOSE
     Route: 048
     Dates: start: 201310, end: 201402
  12. CANNABIDIOL [Concomitant]
     Active Substance: CANNABIDIOL
     Indication: PRODUCT USED FOR UNKNOWN INDICATION
  13. METHYL [Concomitant]
     Indication: PRODUCT USED FOR UNKNOWN INDICATION
  14. OXYCODONE AND ACETAMINOPHEN [Concomitant]
     Active Substance: ACETAMINOPHEN\OXYCODONE HYDROCHLORIDE
     Indication: PRODUCT USED FOR UNKNOWN INDICATION
  15. XYREM [Suspect]
     Active Substance: SODIUM OXYBATE
     Dosage: 2.25 G, BID
     Route: 048
     Dates: start: 201309, end: 201310
  16. LEVOGLUTAMIDE [Concomitant]
     Active Substance: GLUTAMINE
     Indication: PRODUCT USED FOR UNKNOWN INDICATION
  17. ALPHA LIPOIC ACID [Concomitant]
     Active Substance: .ALPHA.-LIPOIC ACID
     Indication: PRODUCT USED FOR UNKNOWN INDICATION
  18. XYREM [Suspect]
     Active Substance: SODIUM OXYBATE
     Indication: INSOMNIA
     Dosage: 4.5 G, BID
     Route: 048
     Dates: start: 200402, end: 200405
  19. DHEA [Concomitant]
     Active Substance: PRASTERONE
     Indication: PRODUCT USED FOR UNKNOWN INDICATION
  20. NYSTATIN. [Concomitant]
     Active Substance: NYSTATIN
     Indication: PRODUCT USED FOR UNKNOWN INDICATION
     Dosage: UNK
     Dates: start: 201802
  21. XYREM [Suspect]
     Active Substance: SODIUM OXYBATE
     Dosage: DOSE ADJUSTMENT
     Route: 048
     Dates: start: 200804, end: 200804
  22. XYREM [Suspect]
     Active Substance: SODIUM OXYBATE
     Dosage: 2.25 G, BID
     Route: 048
     Dates: start: 201209, end: 201209
  23. OLOPATADINE HCL [Concomitant]
     Active Substance: OLOPATADINE HYDROCHLORIDE
     Indication: PRODUCT USED FOR UNKNOWN INDICATION
  24. TRAMADOL HCL [Concomitant]
     Active Substance: TRAMADOL HYDROCHLORIDE
     Indication: PRODUCT USED FOR UNKNOWN INDICATION
  25. XYREM [Suspect]
     Active Substance: SODIUM OXYBATE
     Dosage: 2.25 G, BID
     Route: 048
     Dates: start: 200803, end: 200804
  26. XYREM [Suspect]
     Active Substance: SODIUM OXYBATE
     Dosage: 5.5 G, FIRST DOSE
     Route: 048
     Dates: start: 201310, end: 201402
  27. COLOSTRUM [Concomitant]
     Active Substance: DIETARY SUPPLEMENT
     Indication: PRODUCT USED FOR UNKNOWN INDICATION
  28. ITRACONAZOLE. [Concomitant]
     Active Substance: ITRACONAZOLE
     Indication: PRODUCT USED FOR UNKNOWN INDICATION
  29. RESVERATROL [Concomitant]
     Active Substance: DIETARY SUPPLEMENT\RESVERATROL
     Indication: PRODUCT USED FOR UNKNOWN INDICATION
  30. VITAMIN D3 [Concomitant]
     Active Substance: CHOLECALCIFEROL
     Indication: PRODUCT USED FOR UNKNOWN INDICATION

REACTIONS (3)
  - Product use in unapproved indication [Unknown]
  - Autoimmune disorder [Not Recovered/Not Resolved]
  - Disability [Not Recovered/Not Resolved]
